FAERS Safety Report 9093971 (Version 1)
Quarter: 2013Q1

REPORT INFORMATION
  Report Type: Spontaneous
  Country: DE (occurrence: DE)
  Receive Date: 20130201
  Receipt Date: 20130201
  Transmission Date: 20140127
  Serious: Yes (Other)
  Sender: FDA-Public Use
  Company Number: DE-JNJFOC-20121005962

PATIENT
  Sex: Female
  Weight: 62 kg

DRUGS (5)
  1. XARELTO [Suspect]
     Indication: ATRIAL FIBRILLATION
     Route: 048
  2. SIMVASTATIN [Concomitant]
     Indication: HYPERCHOLESTEROLAEMIA
     Route: 065
  3. TOREM [Concomitant]
     Route: 065
  4. NOVAMINSULFON [Concomitant]
     Indication: PAIN
     Route: 048
  5. HCT [Concomitant]
     Route: 065

REACTIONS (1)
  - Subcutaneous haematoma [Unknown]
